FAERS Safety Report 18273343 (Version 1)
Quarter: 2020Q3

REPORT INFORMATION
  Report Type: Spontaneous
  Country: US (occurrence: US)
  Receive Date: 20200916
  Receipt Date: 20200916
  Transmission Date: 20201103
  Serious: No
  Sender: FDA-Public Use
  Company Number: None

PATIENT
  Age: 54 Year
  Sex: Male
  Weight: 85.19 kg

DRUGS (4)
  1. OXYCONTIN 10MG [Concomitant]
  2. AMLODIPINE [Concomitant]
     Active Substance: AMLODIPINE BESYLATE
  3. AFINITOR [Suspect]
     Active Substance: EVEROLIMUS
     Indication: RENAL CANCER
     Route: 048
     Dates: start: 20200915
  4. LOSARTAN 100MG [Concomitant]
     Active Substance: LOSARTAN

REACTIONS (3)
  - Hypotension [None]
  - Pain [None]
  - Fall [None]

NARRATIVE: CASE EVENT DATE: 20200916
